FAERS Safety Report 5479099-X (Version None)
Quarter: 2007Q4

REPORT INFORMATION
  Report Type: 
  Country: None (occurrence: None)
  Receive Date: 20071006
  Receipt Date: 20070920
  Transmission Date: 20080405
  Serious: Yes (Hospitalization)
  Sender: FDA-Public Use
  Company Number: CH-PFIZER INC-2007081465

PATIENT
  Age: 59 Year
  Sex: Male

DRUGS (1)
  1. CHAMPIX [Suspect]

REACTIONS (3)
  - ARTHROPOD BITE [None]
  - CEREBROVASCULAR ACCIDENT [None]
  - FACIAL PARESIS [None]
